FAERS Safety Report 17730028 (Version 1)
Quarter: 2020Q2

REPORT INFORMATION
  Report Type: Spontaneous
  Country: US (occurrence: US)
  Receive Date: 20200430
  Receipt Date: 20200430
  Transmission Date: 20200714
  Serious: No
  Sender: FDA-Public Use
  Company Number: None

PATIENT
  Age: 19 Year
  Sex: Male
  Weight: 38.56 kg

DRUGS (2)
  1. NORDITROPIN [Suspect]
     Active Substance: SOMATROPIN
     Indication: GROWTH HORMONE DEFICIENCY
     Route: 058
  2. NORDITROPI N [Concomitant]
     Dates: start: 20180401, end: 20200202

REACTIONS (2)
  - Loss of consciousness [None]
  - Therapy interrupted [None]

NARRATIVE: CASE EVENT DATE: 20200202
